FAERS Safety Report 8825433 (Version 1)
Quarter: 2012Q4

REPORT INFORMATION
  Report Type: 
  Country: US (occurrence: US)
  Receive Date: 20121004
  Receipt Date: 20121004
  Transmission Date: 20130627
  Serious: Yes (Hospitalization, Other)
  Sender: FDA-Public Use
  Company Number: US-ASTRAZENECA-2012SE75679

PATIENT
  Age: 40 Year
  Sex: Female
  Weight: 108.9 kg

DRUGS (5)
  1. NEXIUM [Suspect]
     Indication: ULCER
     Route: 048
  2. PRILOSEC [Suspect]
     Indication: ULCER
     Route: 048
  3. ZOLOFT [Concomitant]
     Indication: ANXIETY
  4. ZOLOFT [Concomitant]
     Indication: PANIC ATTACK
  5. VITAMINS [Concomitant]
     Indication: ANAEMIA

REACTIONS (15)
  - Gastrointestinal haemorrhage [Unknown]
  - Haemorrhage [Unknown]
  - Malaise [Unknown]
  - Flatulence [Unknown]
  - Dyspepsia [Unknown]
  - Faeces discoloured [Unknown]
  - Poverty of speech [Unknown]
  - Memory impairment [Unknown]
  - Abdominal discomfort [Unknown]
  - Anaemia [Unknown]
  - Colitis [Unknown]
  - Dyspepsia [Unknown]
  - Ulcer [Unknown]
  - Drug ineffective [Unknown]
  - Off label use [Unknown]
